FAERS Safety Report 16548544 (Version 1)
Quarter: 2019Q3

REPORT INFORMATION
  Report Type: Spontaneous
  Country: PL (occurrence: PL)
  Receive Date: 20190709
  Receipt Date: 20190709
  Transmission Date: 20191004
  Serious: Yes (Life-Threatening, Hospitalization, Disabling, Other)
  Sender: FDA-Public Use
  Company Number: PL-MYLANLABS-2019M1064311

PATIENT
  Age: 67 Year
  Sex: Female

DRUGS (9)
  1. BETALOC                            /00376902/ [Interacting]
     Active Substance: METOPROLOL TARTRATE
     Indication: PRODUCT USED FOR UNKNOWN INDICATION
     Dosage: 2.5 MILLIGRAM, QD
     Route: 042
     Dates: start: 20181013, end: 20181015
  2. CORDARONE [Interacting]
     Active Substance: AMIODARONE HYDROCHLORIDE
     Indication: PRODUCT USED FOR UNKNOWN INDICATION
     Dosage: 1200 MILLIGRAM, QD
     Route: 042
     Dates: start: 20181014, end: 20181015
  3. PYRALGIN /06276704/ [Interacting]
     Active Substance: METAMIZOLE SODIUM
     Indication: PRODUCT USED FOR UNKNOWN INDICATION
     Dosage: 2.5 MILLIGRAM, QD
     Route: 042
     Dates: start: 20181015, end: 20181016
  4. VANCOMYCIN [Suspect]
     Active Substance: VANCOMYCIN
     Indication: PRODUCT USED FOR UNKNOWN INDICATION
     Dosage: 2 GRAM, QD
     Route: 042
     Dates: start: 20181015, end: 20181015
  5. MEROPENEM. [Concomitant]
     Active Substance: MEROPENEM
     Dosage: 3 GRAM, QD
     Route: 042
     Dates: start: 20181014, end: 20181015
  6. DIGOXIN. [Interacting]
     Active Substance: DIGOXIN
     Indication: TACHYCARDIA
     Dosage: LOADING DOSE OF 0.5 MG AT 12:30, THEN THE MAINTENANCE DOSE OF 0.5 MG WAS GIVEN AT 13:30
     Route: 042
     Dates: start: 20181015, end: 20181016
  7. BETALOC                            /00376902/ [Interacting]
     Active Substance: METOPROLOL TARTRATE
     Dosage: 20 MILLIGRAM, QD
     Route: 042
  8. FUROSEMIDE. [Interacting]
     Active Substance: FUROSEMIDE
     Indication: PRODUCT USED FOR UNKNOWN INDICATION
     Dosage: 120 MILLIGRAM, QD
     Route: 042
     Dates: start: 20181012, end: 20181015
  9. GENSULIN R [Concomitant]
     Active Substance: INSULIN HUMAN
     Dosage: UNK
     Dates: start: 20181012, end: 20181015

REACTIONS (1)
  - Drug interaction [Recovered/Resolved with Sequelae]

NARRATIVE: CASE EVENT DATE: 20181015
